FAERS Safety Report 7014587-6 (Version None)
Quarter: 2010Q3

REPORT INFORMATION
  Report Type: 
  Country: None (occurrence: None)
  Receive Date: 20100927
  Receipt Date: 20100921
  Transmission Date: 20110219
  Serious: Yes (Hospitalization)
  Sender: FDA-Public Use
  Company Number: FR-SANOFI-AVENTIS-2010SA056411

PATIENT
  Age: 67 Year
  Sex: Female

DRUGS (15)
  1. AMAREL [Suspect]
     Indication: TYPE 2 DIABETES MELLITUS
     Route: 048
     Dates: end: 20100707
  2. AMOXICILLIN AND CLAVULANATE POTASSIUM [Suspect]
     Indication: ERYSIPELAS
     Route: 048
     Dates: start: 20100702, end: 20100707
  3. BRISTOPEN [Suspect]
     Indication: ERYSIPELAS
     Route: 048
     Dates: start: 20100630, end: 20100702
  4. OLMESARTAN MEDOXOMIL [Suspect]
     Route: 048
     Dates: end: 20100707
  5. METFORMIN [Suspect]
     Indication: TYPE 2 DIABETES MELLITUS
     Route: 048
     Dates: end: 20100707
  6. INSULIN DETEMIR [Suspect]
     Indication: TYPE 2 DIABETES MELLITUS
     Dosage: DOSE:100 INTERNATIONAL UNIT(S)/MILLILITRE
     Route: 058
     Dates: end: 20100705
  7. VASTEN [Concomitant]
     Route: 048
  8. FLUDROCORTISONE [Concomitant]
  9. HYDROCORTISONE [Concomitant]
     Route: 048
     Dates: end: 20100629
  10. HYDROCORTISONE [Concomitant]
     Route: 048
     Dates: start: 20100630
  11. BONIVA [Concomitant]
     Route: 042
  12. OROCAL D(3) [Concomitant]
     Route: 048
  13. AERIUS [Concomitant]
  14. EFFERALGAN [Concomitant]
  15. LEVOTHYROXINE SODIUM [Concomitant]
     Route: 048

REACTIONS (8)
  - DEHYDRATION [None]
  - DIARRHOEA [None]
  - HYPERKALAEMIA [None]
  - HYPOGLYCAEMIA [None]
  - HYPONATRAEMIA [None]
  - MALAISE [None]
  - RENAL FAILURE ACUTE [None]
  - VOMITING [None]
